FAERS Safety Report 8252368-6 (Version None)
Quarter: 2012Q2

REPORT INFORMATION
  Report Type: 
  Country: None (occurrence: None)
  Receive Date: 20120402
  Receipt Date: 20110526
  Transmission Date: 20120825
  Serious: No
  Sender: FDA-Public Use
  Company Number: US-ABBOTT-11P-163-0804615-00

PATIENT
  Sex: Male
  Weight: 147.27 kg

DRUGS (3)
  1. GLIPIZIDE [Concomitant]
     Indication: DIABETES MELLITUS
     Dosage: DAILY DOSE:  UNKNOWN
     Route: 065
  2. LISINOPRIL [Concomitant]
     Indication: HYPERTENSION
     Dosage: DAILY DOSE:  UNKNOWN
     Route: 065
  3. TESTOSTERONE [Suspect]
     Indication: BLOOD TESTOSTERONE DECREASED
     Dosage: DAILY DOSE:  UNKNOWN, UNABLE TO GET LOT/EXP AS PHARMACY LABEL WAS COVERING IT ON BOX
     Route: 062
     Dates: start: 20110505, end: 20110521

REACTIONS (2)
  - LIBIDO DECREASED [None]
  - JOINT SWELLING [None]
